FAERS Safety Report 4936308-0 (Version None)
Quarter: 2006Q1

REPORT INFORMATION
  Report Type: 
  Country: None (occurrence: None)
  Receive Date: 20060127
  Receipt Date: 20051129
  Transmission Date: 20060701
  Serious: Yes (Other)
  Sender: FDA-Public Use
  Company Number: 2005163084

PATIENT
  Age: 58 Year
  Sex: Female

DRUGS (8)
  1. LYRICA [Suspect]
     Indication: ILL-DEFINED DISORDER
     Dosage: 25 MG (25 MG,1 IN 1 D),ORAL
     Route: 048
     Dates: start: 20051121, end: 20051124
  2. PSEUDOEPHEDRINE HCL [Concomitant]
  3. COMPAZINE [Concomitant]
  4. PERCOCET [Concomitant]
  5. XANAX [Concomitant]
  6. BENTYL [Concomitant]
  7. ACETAMINOPHEN [Concomitant]
  8. ALL OTHER THERAPEUTIC PRODUCTS (ALL OTHER THERAPEUTIC PRODUCTS) [Concomitant]

REACTIONS (2)
  - LYMPHOEDEMA [None]
  - OEDEMA PERIPHERAL [None]
